FAERS Safety Report 14900527 (Version 1)
Quarter: 2018Q2

REPORT INFORMATION
  Report Type: Spontaneous
  Country: US (occurrence: US)
  Receive Date: 20180427
  Receipt Date: 20180427
  Transmission Date: 20180711
  Serious: Yes (Hospitalization)
  Sender: FDA-Public Use
  Company Number: None

PATIENT
  Age: 58 Year
  Sex: Male
  Weight: 52.3 kg

DRUGS (1)
  1. LISINOPRIL. [Suspect]
     Active Substance: LISINOPRIL
     Indication: CARDIAC FAILURE CONGESTIVE
     Route: 048
     Dates: start: 20170906, end: 20170921

REACTIONS (5)
  - Angioedema [None]
  - Acute kidney injury [None]
  - Dysarthria [None]
  - Gastroenteritis [None]
  - Facial paralysis [None]

NARRATIVE: CASE EVENT DATE: 20170921
